FAERS Safety Report 6983964-1 (Version None)
Quarter: 2010Q3

REPORT INFORMATION
  Report Type: 
  Country: None (occurrence: None)
  Receive Date: 20100915
  Receipt Date: 20090410
  Transmission Date: 20110219
  Serious: No
  Sender: FDA-Public Use
  Company Number: US-WYE-H08928009

PATIENT
  Age: 22 Year
  Sex: Female

DRUGS (2)
  1. ADVIL LIQUI-GELS [Suspect]
     Indication: HEADACHE
     Route: 048
     Dates: start: 20081201, end: 20081201
  2. ADVIL LIQUI-GELS [Suspect]
     Dosage: 2 TABLETS X 1
     Route: 048
     Dates: start: 20090410

REACTIONS (3)
  - CONDITION AGGRAVATED [None]
  - DRUG INEFFECTIVE [None]
  - HEADACHE [None]
